FAERS Safety Report 8623087-9 (Version None)
Quarter: 2012Q3

REPORT INFORMATION
  Report Type: 
  Country: None (occurrence: None)
  Receive Date: 20120827
  Receipt Date: 20120820
  Transmission Date: 20120928
  Serious: Yes (Other)
  Sender: FDA-Public Use
  Company Number: JP-JNJFOC-20120807849

PATIENT
  Age: 84 Year
  Sex: Female

DRUGS (6)
  1. LOXONIN [Suspect]
     Indication: PRODUCT USED FOR UNKNOWN INDICATION
     Dosage: 3 TIMES PER DAY
     Route: 065
  2. ZOLPIDEM [Concomitant]
     Route: 048
  3. AMLODIPINE [Concomitant]
     Route: 048
  4. TRAMADOL HCL [Suspect]
     Indication: PROCTALGIA
     Dosage: 1 PER DAY
     Route: 048
     Dates: start: 20120806, end: 20120809
  5. DEPAS [Suspect]
     Indication: PRODUCT USED FOR UNKNOWN INDICATION
     Route: 048
  6. PURSENNID [Concomitant]
     Route: 048

REACTIONS (2)
  - MYOCLONUS [None]
  - CONVULSION [None]
